FAERS Safety Report 14738512 (Version 1)
Quarter: 2018Q2

REPORT INFORMATION
  Report Type: Report from Study
  Country: US (occurrence: US)
  Receive Date: 20180409
  Receipt Date: 20180409
  Transmission Date: 20180711
  Serious: Yes (Hospitalization)
  Sender: FDA-Public Use
  Company Number: US-SHIRE-US201812617

PATIENT
  Age: 55 Year
  Sex: Female
  Weight: 75.74 kg

DRUGS (14)
  1. TEDUGLUTIDE [Suspect]
     Active Substance: TEDUGLUTIDE
     Dosage: 3.4 MG, 1X/DAY:QD
     Route: 065
     Dates: start: 20160422, end: 20160505
  2. TEDUGLUTIDE [Suspect]
     Active Substance: TEDUGLUTIDE
     Dosage: 3.4 MG, 1X/DAY:QD
     Route: 065
     Dates: start: 20161031, end: 20170210
  3. TEDUGLUTIDE [Suspect]
     Active Substance: TEDUGLUTIDE
     Dosage: 3.8 MG, 1X/DAY:QD
     Route: 065
     Dates: start: 20170606, end: 20170814
  4. TEDUGLUTIDE [Suspect]
     Active Substance: TEDUGLUTIDE
     Dosage: 3.8 MG, 1X/DAY:QD
     Route: 065
     Dates: start: 20170816, end: 20171204
  5. METRONIDAZOLE. [Concomitant]
     Active Substance: METRONIDAZOLE
     Indication: INFECTION
  6. TEDUGLUTIDE [Suspect]
     Active Substance: TEDUGLUTIDE
     Indication: PRODUCT USED FOR UNKNOWN INDICATION
     Dosage: 3.4 MG, 1X/DAY:QD
     Route: 065
     Dates: start: 20140808, end: 20141030
  7. TEDUGLUTIDE [Suspect]
     Active Substance: TEDUGLUTIDE
     Dosage: 3.8 MG, 1X/DAY:QD
     Route: 065
     Dates: start: 20170525, end: 20170531
  8. TEDUGLUTIDE [Suspect]
     Active Substance: TEDUGLUTIDE
     Dosage: 3.4 MG, 1X/DAY:QD
     Route: 065
     Dates: start: 20160104, end: 201601
  9. TEDUGLUTIDE [Suspect]
     Active Substance: TEDUGLUTIDE
     Dosage: 3.4 MG, 1X/DAY:QD
     Route: 065
     Dates: start: 20170211, end: 20170524
  10. BACTRIM [Concomitant]
     Active Substance: SULFAMETHOXAZOLE\TRIMETHOPRIM
     Indication: INFECTION
  11. CEFTRIAXONE. [Concomitant]
     Active Substance: CEFTRIAXONE
     Indication: INFECTION
  12. TEDUGLUTIDE [Suspect]
     Active Substance: TEDUGLUTIDE
     Dosage: 3.4 MG, 1X/DAY:QD
     Route: 065
     Dates: start: 20141031, end: 20151211
  13. TEDUGLUTIDE [Suspect]
     Active Substance: TEDUGLUTIDE
     Dosage: 3.4 MG, 1X/DAY:QD
     Route: 065
     Dates: start: 201603, end: 20160421
  14. RIFAXIMIN. [Concomitant]
     Active Substance: RIFAXIMIN
     Indication: GASTROINTESTINAL BACTERIAL OVERGROWTH

REACTIONS (1)
  - Excessive granulation tissue [Recovered/Resolved]

NARRATIVE: CASE EVENT DATE: 20160605
